FAERS Safety Report 10393956 (Version 2)
Quarter: 2014Q1

REPORT INFORMATION
  Report Type: Spontaneous
  Country: US (occurrence: None)
  Receive Date: 20121031
  Receipt Date: 20130107
  Transmission Date: 20141002
  Serious: No
  Sender: FDA-Public Use
  Company Number: PHEH2012US010430

PATIENT
  Age: 70 Year
  Sex: Female

DRUGS (10)
  1. GILENYA (FTY) UNKNOWN, 0.5MG [Suspect]
     Indication: MULTIPLE SCLEROSIS
     Route: 048
     Dates: start: 20120316, end: 20121026
  2. INDERAL (PROPRANOLOL HYDROCHLORIDE) [Concomitant]
  3. LASIX (FUROSEMIDE) [Concomitant]
  4. POTASSIUM [Concomitant]
  5. ZOCOR (SIMVASTATIN) [Concomitant]
  6. GLUCOSAMINE [Concomitant]
  7. PROBIOTICS (NO INGREDIENTS/SUBSTANCES) [Concomitant]
  8. MULTIVITAMINS (ASCORBIC ACID, ERGOCALCIFEROL, FOLIC ACID, NICOTINAMIDE, PANTHENOL, RETINOL, RIBOFLAVIN, THIAMINE HYDROCHLORIDE) [Concomitant]
  9. TYLENOL (PARACETAMOL) [Concomitant]
  10. PROTEIN SUPPLEMENTS (NO INGREDIENTS/SUBSTANCES) [Concomitant]

REACTIONS (8)
  - Tremor [None]
  - Multiple sclerosis relapse [None]
  - Heart rate decreased [None]
  - Lymphocyte count decreased [None]
  - Cerebellar syndrome [None]
  - Gait disturbance [None]
  - Fatigue [None]
  - Headache [None]
